FAERS Safety Report 10081694 (Version 2)
Quarter: 2014Q2

REPORT INFORMATION
  Report Type: Spontaneous
  Country: CA (occurrence: CA)
  Receive Date: 20140416
  Receipt Date: 20140513
  Transmission Date: 20141212
  Serious: Yes (Hospitalization, Other)
  Sender: FDA-Public Use
  Company Number: CA-BAXTER-2014BAX018675

PATIENT
  Age: 80 Year
  Sex: Male

DRUGS (3)
  1. DIANEAL PD4 SOLUTION WITH 1.5% DEXTROSE AND 2.5 MEQ/L CALCIUM [Suspect]
     Indication: PERITONEAL DIALYSIS
     Route: 033
     Dates: start: 201401, end: 20140430
  2. EXTRANEAL [Suspect]
     Indication: PERITONEAL DIALYSIS
     Dosage: TWO BAGS
     Route: 033
     Dates: start: 201401, end: 20140430
  3. EXTRANEAL [Suspect]
     Indication: OFF LABEL USE

REACTIONS (3)
  - Pain in extremity [Recovering/Resolving]
  - Skin discolouration [Unknown]
  - Disease recurrence [Unknown]
